FAERS Safety Report 25543484 (Version 2)
Quarter: 2025Q4

REPORT INFORMATION
  Report Type: Spontaneous
  Country: CR (occurrence: CR)
  Receive Date: 20250711
  Receipt Date: 20251006
  Transmission Date: 20260117
  Serious: No
  Sender: SANDOZ
  Company Number: CR-SANDOZ-SDZ2024CR102899

PATIENT
  Sex: Male

DRUGS (1)
  1. CARVEDILOL [Suspect]
     Active Substance: CARVEDILOL
     Indication: Product used for unknown indication
     Dosage: 12.5
     Route: 065

REACTIONS (1)
  - Platelet count decreased [Unknown]
